FAERS Safety Report 4975752-2 (Version None)
Quarter: 2006Q2

REPORT INFORMATION
  Report Type: 
  Country: None (occurrence: None)
  Receive Date: 20060411
  Receipt Date: 20060324
  Transmission Date: 20061013
  Serious: Yes (Hospitalization, Other)
  Sender: FDA-Public Use
  Company Number: US200602001408

PATIENT
  Age: 55 Year
  Sex: Female
  Weight: 55.8 kg

DRUGS (10)
  1. FORTEO [Suspect]
     Indication: OSTEOPOROSIS
     Dosage: 20 UG/DAY,
     Dates: start: 20051219
  2. FORTEO [Concomitant]
  3. FORTEO [Concomitant]
  4. THYROID (THYROID UNKNOWN FORMULATION) UNKNOWN [Concomitant]
  5. CALTRATE (CALCIUM CARBONATE) [Concomitant]
  6. ASPIRIN [Concomitant]
  7. TOPROL-XL [Concomitant]
  8. SYNTHROID [Concomitant]
  9. SINGULAIR ^MERCK^ (MONTELUKAST SODIUM) [Concomitant]
  10. ADVAIR DISKUS 100/50 [Concomitant]

REACTIONS (5)
  - CONTUSION [None]
  - CONVULSION [None]
  - DIZZINESS [None]
  - HAEMORRHAGE [None]
  - HEAD INJURY [None]
